FAERS Safety Report 22970816 (Version 2)
Quarter: 2023Q4

REPORT INFORMATION
  Report Type: Spontaneous
  Country: JP (occurrence: JP)
  Receive Date: 20230922
  Receipt Date: 20231218
  Transmission Date: 20240110
  Serious: Yes (Hospitalization)
  Sender: FDA-Public Use
  Company Number: JP-ABBVIE-5415164

PATIENT
  Age: 20 Year
  Sex: Female

DRUGS (2)
  1. RINVOQ [Suspect]
     Active Substance: UPADACITINIB
     Indication: Colitis ulcerative
     Dosage: FORM STRENGTH: 15 MILLIGRAM?INDUCTION THERAPY WITH RINVOQ WAS STARTED AT 45 MG (15 MG, 3 TABLETS)...
     Route: 048
     Dates: start: 20230904
  2. RINVOQ [Suspect]
     Active Substance: UPADACITINIB
     Indication: Colitis ulcerative
     Dosage: FORM STRENGTH: 15 MILLIGRAMS?FIRST ADMIN DATE: 2023
     Route: 048

REACTIONS (4)
  - White blood cell count decreased [Recovered/Resolved]
  - Immunodeficiency [Recovered/Resolved]
  - Opportunistic infection [Recovered/Resolved]
  - Infectious pleural effusion [Recovered/Resolved]

NARRATIVE: CASE EVENT DATE: 20230901
